FAERS Safety Report 15372958 (Version 1)
Quarter: 2018Q4

REPORT INFORMATION
  Report Type: Spontaneous
  Country: IT (occurrence: IT)
  Receive Date: 20180912
  Receipt Date: 20180912
  Transmission Date: 20190204
  Serious: Yes (Hospitalization, Other)
  Sender: FDA-Public Use
  Company Number: IT-ACCORD-071478

PATIENT
  Age: 4 Year
  Sex: Male

DRUGS (4)
  1. TACROLIMUS. [Suspect]
     Active Substance: TACROLIMUS
     Indication: GRAFT VERSUS HOST DISEASE
  2. METHYLPREDNISOLONE. [Suspect]
     Active Substance: METHYLPREDNISOLONE
     Indication: GRAFT VERSUS HOST DISEASE
  3. METHOTREXATE/METHOTREXATE SODIUM [Suspect]
     Active Substance: METHOTREXATE\METHOTREXATE SODIUM
     Indication: GRAFT VERSUS HOST DISEASE
  4. MYCOPHENOLIC ACID. [Suspect]
     Active Substance: MYCOPHENOLIC ACID
     Indication: GRAFT VERSUS HOST DISEASE

REACTIONS (5)
  - Hepatitis cholestatic [Unknown]
  - Cystitis haemorrhagic [Unknown]
  - Cytomegalovirus infection [Unknown]
  - BK virus infection [Unknown]
  - Human herpesvirus 6 infection [Unknown]
